FAERS Safety Report 4279062-0 (Version None)
Quarter: 2004Q1

REPORT INFORMATION
  Report Type: 
  Country: None (occurrence: None)
  Receive Date: 20040126
  Receipt Date: 20040120
  Transmission Date: 20041129
  Serious: Yes (Death, Hospitalization)
  Sender: FDA-Public Use
  Company Number: PHBS2004JP01087

PATIENT
  Age: 88 Year
  Sex: Female

DRUGS (5)
  1. DIOVAN [Suspect]
     Indication: HYPERTENSION
     Dosage: 80 MG/DAY
     Route: 048
     Dates: start: 20021216
  2. DIGOXIN [Concomitant]
     Dosage: .125 MG, UNK
     Route: 048
     Dates: start: 20021216
  3. LASIX [Concomitant]
     Dosage: 20 MG, UNK
     Route: 048
     Dates: start: 20021215
  4. ITOROL [Concomitant]
     Dosage: 40 MG, UNK
     Route: 048
     Dates: start: 20021215
  5. SIMVASTATIN [Concomitant]
     Dosage: 10 MG, UNK
     Route: 048
     Dates: start: 20030716

REACTIONS (4)
  - PNEUMONIA [None]
  - PYREXIA [None]
  - RESPIRATORY DISORDER [None]
  - SUPRAVENTRICULAR EXTRASYSTOLES [None]
